FAERS Safety Report 19351970 (Version 3)
Quarter: 2021Q2

REPORT INFORMATION
  Report Type: Spontaneous
  Country: US (occurrence: US)
  Receive Date: 20210531
  Receipt Date: 20210601
  Transmission Date: 20210717
  Serious: No
  Sender: FDA-Public Use
  Company Number: US-PFIZER INC-2021366343

PATIENT
  Sex: Female

DRUGS (1)
  1. METHOTREXATE SODIUM. [Suspect]
     Active Substance: METHOTREXATE SODIUM
     Indication: PSORIATIC ARTHROPATHY
     Dosage: 7.5 MG, WEEKLY (ONCE A WEEK)

REACTIONS (6)
  - Thyroid disorder [Not Recovered/Not Resolved]
  - Vocal cord disorder [Unknown]
  - Intentional product misuse [Unknown]
  - Throat irritation [Unknown]
  - Cough [Unknown]
  - Stress [Unknown]
